FAERS Safety Report 6391560-2 (Version None)
Quarter: 2009Q4

REPORT INFORMATION
  Report Type: 
  Country: None (occurrence: None)
  Receive Date: 20091001
  Receipt Date: 20090922
  Transmission Date: 20100525
  Serious: Yes (Disabling)
  Sender: FDA-Public Use
  Company Number: ADR28112009

PATIENT
  Age: 51 Year
  Sex: Male

DRUGS (4)
  1. RAMIPRIL [Suspect]
     Indication: HYPERTENSION
     Dosage: 5 MG , ORAL
     Route: 048
     Dates: start: 20070608, end: 20080902
  2. BENDROFLUMETHIAZIDE (2.5 MG) [Concomitant]
  3. CORACTEN XL (60 MG) [Concomitant]
  4. FUROSEMIDE (20 MG) [Concomitant]

REACTIONS (1)
  - LICHEN PLANUS [None]
